FAERS Safety Report 6204057-7 (Version None)
Quarter: 2009Q2

REPORT INFORMATION
  Report Type: 
  Country: None (occurrence: None)
  Receive Date: 20090518
  Receipt Date: 20090311
  Transmission Date: 20091009
  Serious: No
  Sender: FDA-Public Use
  Company Number: WAES 0903USA01825

PATIENT
  Age: 69 Year
  Sex: Male

DRUGS (2)
  1. JANUVIA [Suspect]
     Indication: DIABETES MELLITUS
     Dosage: 100 MG/DAILY/PO; 150 MG/DAILY/PO
     Route: 048
     Dates: start: 20080701
  2. JANUVIA [Suspect]
     Indication: DIABETES MELLITUS
     Dosage: 100 MG/DAILY/PO; 150 MG/DAILY/PO
     Route: 048
     Dates: start: 20081101

REACTIONS (2)
  - BLOOD GLUCOSE FLUCTUATION [None]
  - HAEMOGLOBIN DECREASED [None]
